FAERS Safety Report 6317001-9 (Version None)
Quarter: 2009Q3

REPORT INFORMATION
  Report Type: 
  Country: None (occurrence: None)
  Receive Date: 20090820
  Receipt Date: 20090811
  Transmission Date: 20100115
  Serious: Yes (Other)
  Sender: FDA-Public Use
  Company Number: NO-WYE-H10633609

PATIENT
  Age: 57 Year
  Sex: Male

DRUGS (7)
  1. CORDARONE [Suspect]
     Indication: ATRIAL FLUTTER
     Dosage: 200 MG EVERY 2.5 DAYS
     Route: 048
     Dates: start: 20040101, end: 20050427
  2. CORDARONE [Suspect]
     Route: 048
     Dates: start: 20060101
  3. AEROBEC [Concomitant]
     Dosage: UNSPECIFIED
     Route: 055
  4. ENALAPRIL MALEATE [Concomitant]
     Dosage: UNSPECIFIED
     Route: 048
  5. VENTOLIN [Concomitant]
     Dosage: UNSPECIFIED
  6. SIMVASTATIN [Concomitant]
     Dosage: 40 MG EVERY
     Route: 048
  7. MAREVAN [Concomitant]
     Dosage: UNSPECIFIED
     Route: 048

REACTIONS (4)
  - ASTHMA [None]
  - CHRONIC OBSTRUCTIVE PULMONARY DISEASE [None]
  - DYSPNOEA [None]
  - PULMONARY FUNCTION TEST DECREASED [None]
